FAERS Safety Report 19449729 (Version 3)
Quarter: 2023Q2

REPORT INFORMATION
  Report Type: Report from Study
  Country: ES (occurrence: ES)
  Receive Date: 20210622
  Receipt Date: 20230620
  Transmission Date: 20230721
  Serious: Yes (Hospitalization, Other)
  Sender: FDA-Public Use
  Company Number: ES-TAKEDA-2021TUS038883

PATIENT
  Age: 63 Year
  Sex: Female

DRUGS (8)
  1. TEDUGLUTIDE [Suspect]
     Active Substance: TEDUGLUTIDE
     Indication: Short-bowel syndrome
     Dosage: 0.05 MILLIGRAM/KILOGRAM, QD
     Route: 065
     Dates: start: 20190522, end: 20191119
  2. TEDUGLUTIDE [Suspect]
     Active Substance: TEDUGLUTIDE
     Indication: Short-bowel syndrome
     Dosage: 0.05 MILLIGRAM/KILOGRAM, QD
     Route: 065
     Dates: start: 20190522, end: 20191119
  3. TEDUGLUTIDE [Suspect]
     Active Substance: TEDUGLUTIDE
     Indication: Short-bowel syndrome
     Dosage: 0.05 MILLIGRAM/KILOGRAM, QD
     Route: 065
     Dates: start: 20190522, end: 20191119
  4. TEDUGLUTIDE [Suspect]
     Active Substance: TEDUGLUTIDE
     Indication: Short-bowel syndrome
     Dosage: 0.05 MILLIGRAM/KILOGRAM, QD
     Route: 065
     Dates: start: 20190522, end: 20191119
  5. IRON SUCROSE [Concomitant]
     Active Substance: IRON SUCROSE
     Indication: Iron deficiency
     Dosage: 200 MILLIGRAM, TID
     Route: 042
     Dates: start: 20200219, end: 20200302
  6. SCOPOLAMINE [Concomitant]
     Active Substance: SCOPOLAMINE
     Indication: Muscle spasms
     Dosage: 20 MILLIGRAM, QD
     Route: 042
     Dates: start: 20200225, end: 20200229
  7. METOCLOPRAMIDE [Concomitant]
     Active Substance: METOCLOPRAMIDE
     Indication: Nausea
     Dosage: 10 MILLIGRAM, ONE DOSE
     Route: 042
     Dates: start: 20200209, end: 20200209
  8. DAPTOMYCIN [Concomitant]
     Active Substance: DAPTOMYCIN
     Indication: Urinary tract infection
     Dosage: 300 MILLIGRAM, QD
     Route: 042
     Dates: start: 20200211, end: 20200211

REACTIONS (2)
  - Systemic candida [Recovered/Resolved]
  - Device related infection [Recovered/Resolved]

NARRATIVE: CASE EVENT DATE: 20210202
